FAERS Safety Report 6636362-4 (Version None)
Quarter: 2010Q1

REPORT INFORMATION
  Report Type: 
  Country: None (occurrence: None)
  Receive Date: 20100226
  Receipt Date: 20091222
  Transmission Date: 20100710
  Serious: Yes (Hospitalization)
  Sender: FDA-Public Use
  Company Number: WAES 0503USA04054

PATIENT
  Sex: Female

DRUGS (3)
  1. PRINIVIL [Suspect]
     Dosage: 10 MG/DAILY/PO
     Route: 048
  2. METHOTREXATE [Suspect]
     Dosage: 12.5 MG/WKY/PO
     Route: 048
  3. LIPITOR [Suspect]
     Dosage: 10 MG/DAILY/PO
     Route: 048

REACTIONS (3)
  - ABDOMINAL PAIN UPPER [None]
  - HYPERKALAEMIA [None]
  - RENAL FAILURE [None]
